FAERS Safety Report 6551008-1 (Version None)
Quarter: 2010Q1

REPORT INFORMATION
  Report Type: 
  Country: None (occurrence: None)
  Receive Date: 20100125
  Receipt Date: 20100115
  Transmission Date: 20100710
  Serious: Yes (Hospitalization)
  Sender: FDA-Public Use
  Company Number: PL-AMGEN-US385431

PATIENT
  Sex: Male
  Weight: 74 kg

DRUGS (2)
  1. ENBREL [Suspect]
     Indication: PSORIATIC ARTHROPATHY
     Route: 065
     Dates: start: 20090120, end: 20091112
  2. ENBREL [Suspect]
     Indication: PSORIASIS

REACTIONS (2)
  - HAEMATURIA [None]
  - URINARY TRACT NEOPLASM [None]
